FAERS Safety Report 5861535-8 (Version None)
Quarter: 2008Q3

REPORT INFORMATION
  Report Type: 
  Country: None (occurrence: None)
  Receive Date: 20080827
  Receipt Date: 20080602
  Transmission Date: 20090109
  Serious: No
  Sender: FDA-Public Use
  Company Number: US-ABBOTT-08P-163-0454504-00

PATIENT
  Sex: Male
  Weight: 99.88 kg

DRUGS (4)
  1. COATED PDS [Suspect]
     Indication: LOW DENSITY LIPOPROTEIN INCREASED
     Route: 048
     Dates: start: 20080505, end: 20080511
  2. METFORMIN HCL [Concomitant]
     Indication: TYPE 2 DIABETES MELLITUS
     Route: 048
  3. FEXOFENADINE [Concomitant]
     Indication: DRUG USE FOR UNKNOWN INDICATION
     Route: 048
  4. PRAVASTATIN [Concomitant]
     Indication: BLOOD CHOLESTEROL INCREASED
     Route: 048

REACTIONS (6)
  - BLOOD PRESSURE INCREASED [None]
  - BURNING SENSATION [None]
  - EAR DISCOMFORT [None]
  - ERYTHEMA [None]
  - HEART RATE INCREASED [None]
  - LIP SWELLING [None]
